FAERS Safety Report 5779897-9 (Version None)
Quarter: 2008Q2

REPORT INFORMATION
  Report Type: 
  Country: None (occurrence: None)
  Receive Date: 20080620
  Receipt Date: 20080520
  Transmission Date: 20081010
  Serious: No
  Sender: FDA-Public Use
  Company Number: US-BAYER-200823709NA

PATIENT
  Age: 37 Year
  Sex: Female
  Weight: 45 kg

DRUGS (1)
  1. YAZ [Suspect]
     Indication: CONTRACEPTION
     Route: 048
     Dates: start: 20080429

REACTIONS (3)
  - BINOCULAR EYE MOVEMENT DISORDER [None]
  - HEART RATE IRREGULAR [None]
  - PAIN IN EXTREMITY [None]
